FAERS Safety Report 11379849 (Version 1)
Quarter: 2015Q3

REPORT INFORMATION
  Report Type: Spontaneous
  Country: US (occurrence: None)
  Receive Date: 20150813
  Receipt Date: 20150813
  Transmission Date: 20151125
  Serious: Yes (Disabling)
  Sender: FDA-Public Use
  Company Number: None

PATIENT
  Age: 51 Year
  Sex: Female
  Weight: 68.04 kg

DRUGS (1)
  1. D AMPHETAMINE SALT COMBO 30 MG TAB TEVA [Suspect]
     Active Substance: AMPHETAMINE ASPARTATE\AMPHETAMINE SULFATE\DEXTROAMPHETAMINE SACCHARATE\DEXTROAMPHETAMINE SULFATE
     Indication: ATTENTION DEFICIT/HYPERACTIVITY DISORDER
     Dosage: 1.5   TWICE DAILY TAKEN BY MOUTH
     Route: 048
     Dates: start: 20150501, end: 20150812

REACTIONS (7)
  - Lethargy [None]
  - Vision blurred [None]
  - Drug ineffective [None]
  - Nausea [None]
  - Headache [None]
  - Vertigo [None]
  - Depression [None]

NARRATIVE: CASE EVENT DATE: 20150501
